FAERS Safety Report 15727824 (Version 1)
Quarter: 2018Q4

REPORT INFORMATION
  Report Type: Spontaneous
  Country: US (occurrence: US)
  Receive Date: 20181217
  Receipt Date: 20181217
  Transmission Date: 20190205
  Serious: No
  Sender: FDA-Public Use
  Company Number: US-PFIZER INC-2018515111

PATIENT
  Sex: Female

DRUGS (1)
  1. DOCETAXEL. [Suspect]
     Active Substance: DOCETAXEL
     Indication: BREAST CANCER FEMALE
     Dosage: UNK
     Dates: start: 20140122, end: 20140507

REACTIONS (1)
  - Alopecia [Not Recovered/Not Resolved]
